FAERS Safety Report 18637626 (Version 1)
Quarter: 2020Q4

REPORT INFORMATION
  Report Type: Spontaneous
  Country: FR (occurrence: FR)
  Receive Date: 20201218
  Receipt Date: 20201218
  Transmission Date: 20210114
  Serious: Yes (Other)
  Sender: FDA-Public Use
  Company Number: FR-009507513-2012FRA006009

PATIENT
  Age: 75 Year
  Sex: Male

DRUGS (3)
  1. VOSEVI [Concomitant]
     Active Substance: SOFOSBUVIR\VELPATASVIR\VOXILAPREVIR
     Dosage: UNK
     Dates: start: 20160331, end: 20160623
  2. SOFOSBUVIR [Concomitant]
     Active Substance: SOFOSBUVIR
     Dosage: UNK
     Dates: start: 20140404, end: 20140916
  3. RIBAVIRIN. [Suspect]
     Active Substance: RIBAVIRIN
     Dosage: UNK
     Dates: start: 20140404, end: 20140916

REACTIONS (1)
  - Hepatocellular carcinoma [Recovered/Resolved]

NARRATIVE: CASE EVENT DATE: 20200106
